FAERS Safety Report 4297349-2 (Version None)
Quarter: 2004Q1

REPORT INFORMATION
  Report Type: 
  Country: None (occurrence: None)
  Receive Date: 20040213
  Receipt Date: 20040206
  Transmission Date: 20041129
  Serious: Yes (Death, Hospitalization)
  Sender: FDA-Public Use
  Company Number: 200410429GDS

PATIENT
  Age: 79 Year
  Sex: Male

DRUGS (8)
  1. MOXIFLOXACIN HCL [Suspect]
     Indication: RESPIRATORY TRACT INFECTION
     Dosage: 400 MG, TOTAL DAILY, ORAL
     Route: 048
  2. WARFARIN SODIUM [Concomitant]
  3. THEOPHYLLINE [Concomitant]
  4. FUROSEMIDE [Concomitant]
  5. POTASSIUM [Concomitant]
  6. ALBUTEROL [Concomitant]
  7. DIGOXIN [Concomitant]
  8. OMEPRAZOLE [Concomitant]

REACTIONS (6)
  - GENERAL PHYSICAL HEALTH DETERIORATION [None]
  - MULTI-ORGAN FAILURE [None]
  - OXYGEN SATURATION DECREASED [None]
  - PO2 DECREASED [None]
  - RENAL FAILURE [None]
  - STATUS EPILEPTICUS [None]
